FAERS Safety Report 11037825 (Version 1)
Quarter: 2015Q2

REPORT INFORMATION
  Report Type: Spontaneous
  Country: US (occurrence: None)
  Receive Date: 20150415
  Receipt Date: 20150415
  Transmission Date: 20150821
  Serious: Yes (Hospitalization)
  Sender: FDA-Public Use
  Company Number: None

PATIENT
  Age: 76 Year
  Sex: Male
  Weight: 95 kg

DRUGS (1)
  1. PREDNISONE. [Suspect]
     Active Substance: PREDNISONE
     Dates: end: 20150414

REACTIONS (8)
  - Hypoaesthesia [None]
  - Paraesthesia [None]
  - Blood glucose decreased [None]
  - Haematochezia [None]
  - Peripheral sensory neuropathy [None]
  - Gait disturbance [None]
  - Radiation proctitis [None]
  - Dehydration [None]

NARRATIVE: CASE EVENT DATE: 20150327
